FAERS Safety Report 5078248-5 (Version None)
Quarter: 2006Q3

REPORT INFORMATION
  Report Type: 
  Country: None (occurrence: None)
  Receive Date: 20060811
  Receipt Date: 20060802
  Transmission Date: 20061208
  Serious: Yes (Other)
  Sender: FDA-Public Use
  Company Number: US-ROCHE-458015

PATIENT
  Sex: Male

DRUGS (2)
  1. VALIUM [Suspect]
     Indication: BACK PAIN
     Dosage: INDICATION REPORTED AS BACK PAIN AND ANXIETY.
     Route: 065
  2. VALIUM [Suspect]
     Route: 065

REACTIONS (1)
  - CONVULSION [None]
